FAERS Safety Report 25247879 (Version 2)
Quarter: 2025Q3

REPORT INFORMATION
  Report Type: Spontaneous
  Country: CA (occurrence: CA)
  Receive Date: 20250429
  Receipt Date: 20250809
  Transmission Date: 20251021
  Serious: Yes (Other)
  Sender: ALEXION PHARMACEUTICALS
  Company Number: CA-AstraZeneca-CH-00856233A

PATIENT
  Sex: Female

DRUGS (1)
  1. TAGRISSO [Suspect]
     Active Substance: OSIMERTINIB
     Route: 065

REACTIONS (8)
  - Lung carcinoma cell type unspecified stage IV [Unknown]
  - Nasal congestion [Unknown]
  - Cough [Unknown]
  - Nail discolouration [Unknown]
  - Dermatitis acneiform [Unknown]
  - Inflammation [Unknown]
  - Skin atrophy [Unknown]
  - Dyspnoea [Unknown]
